FAERS Safety Report 7353595-2 (Version None)
Quarter: 2011Q1

REPORT INFORMATION
  Report Type: 
  Country: None (occurrence: None)
  Receive Date: 20110315
  Receipt Date: 20110307
  Transmission Date: 20110831
  Serious: Yes (Hospitalization)
  Sender: FDA-Public Use
  Company Number: US-SANOFI-AVENTIS-2011SA013831

PATIENT
  Sex: Male

DRUGS (3)
  1. HYDROXYCHLOROQUINE SULFATE [Suspect]
     Indication: LUPUS NEPHRITIS
     Route: 065
     Dates: start: 20100101
  2. HYDROXYCHLOROQUINE SULFATE [Suspect]
     Route: 065
     Dates: start: 20100101
  3. MYCOPHENOLATE MOFETIL [Concomitant]
     Route: 065
     Dates: start: 20080101

REACTIONS (17)
  - THROMBOTIC THROMBOCYTOPENIC PURPURA [None]
  - DYSPNOEA EXERTIONAL [None]
  - HAEMOPTYSIS [None]
  - CHROMATURIA [None]
  - PLATELET COUNT DECREASED [None]
  - VIITH NERVE PARALYSIS [None]
  - RENAL FAILURE ACUTE [None]
  - BLOOD CREATININE INCREASED [None]
  - PYREXIA [None]
  - OROPHARYNGEAL PAIN [None]
  - BLOOD LACTATE DEHYDROGENASE INCREASED [None]
  - OCULAR ICTERUS [None]
  - PRODUCTIVE COUGH [None]
  - ASTHENIA [None]
  - HAEMOGLOBIN DECREASED [None]
  - MUSCULAR WEAKNESS [None]
  - APHASIA [None]
